FAERS Safety Report 9812340 (Version 1)
Quarter: 2014Q1

REPORT INFORMATION
  Report Type: Spontaneous
  Country: FR (occurrence: FR)
  Receive Date: 20140113
  Receipt Date: 20140113
  Transmission Date: 20141002
  Serious: Yes (Hospitalization)
  Sender: FDA-Public Use
  Company Number: FR-ROCHE-1331345

PATIENT
  Age: 85 Year
  Sex: Male

DRUGS (8)
  1. MABTHERA [Suspect]
     Indication: B-CELL LYMPHOMA
     Route: 042
     Dates: start: 20130409, end: 20130607
  2. SIMVASTATINE [Concomitant]
     Route: 048
  3. SOLUPRED (FRANCE) [Concomitant]
     Route: 048
  4. PREVISCAN (FRANCE) [Concomitant]
     Route: 048
  5. TRIATEC (FRANCE) [Concomitant]
     Route: 048
  6. PERMIXON [Concomitant]
     Route: 048
  7. XANAX [Concomitant]
     Route: 048
  8. MOPRAL (FRANCE) [Concomitant]
     Route: 048

REACTIONS (5)
  - Atrial fibrillation [Unknown]
  - Atrial fibrillation [Unknown]
  - Congestive cardiomyopathy [Unknown]
  - Ejection fraction decreased [Unknown]
  - Disease progression [Unknown]
